FAERS Safety Report 23799853 (Version 1)
Quarter: 2024Q2

REPORT INFORMATION
  Report Type: Spontaneous
  Country: US (occurrence: None)
  Receive Date: 20240429
  Receipt Date: 20240429
  Transmission Date: 20240716
  Serious: No
  Sender: FDA-Public Use
  Company Number: None

PATIENT
  Age: 43 Year
  Sex: Male
  Weight: 0.45 kg

DRUGS (1)
  1. SIMVASTATIN [Suspect]
     Active Substance: SIMVASTATIN
     Indication: Hyperlipidaemia
     Dosage: OTHER QUANTITY : 1 TABLET(S);?FREQUENCY : DAILY;?
     Route: 048

REACTIONS (8)
  - Contraindication to medical treatment [None]
  - Gilbert^s syndrome [None]
  - Dementia with Lewy bodies [None]
  - Atrophy [None]
  - Muscle spasms [None]
  - Pain [None]
  - Cognitive disorder [None]
  - Iatrogenic metastasis [None]

NARRATIVE: CASE EVENT DATE: 20210412
